FAERS Safety Report 14391775 (Version 1)
Quarter: 2018Q1

REPORT INFORMATION
  Report Type: Spontaneous
  Country: US (occurrence: US)
  Receive Date: 20180112
  Receipt Date: 20180112
  Transmission Date: 20180509
  Serious: Yes (Hospitalization)
  Sender: FDA-Public Use
  Company Number: None

PATIENT
  Age: 61 Year
  Sex: Female

DRUGS (1)
  1. PROLIA [Suspect]
     Active Substance: DENOSUMAB

REACTIONS (5)
  - Pain [None]
  - Lymphadenopathy [None]
  - Haemorrhage [None]
  - Lung disorder [None]
  - Arthralgia [None]

NARRATIVE: CASE EVENT DATE: 20180112
